FAERS Safety Report 5813993-2 (Version None)
Quarter: 2008Q3

REPORT INFORMATION
  Report Type: 
  Country: None (occurrence: None)
  Receive Date: 20080715
  Receipt Date: 20080702
  Transmission Date: 20090109
  Serious: Yes (Death, Hospitalization)
  Sender: FDA-Public Use
  Company Number: 14746

PATIENT
  Age: 41 Year
  Sex: Female
  Weight: 90.7194 kg

DRUGS (5)
  1. MORPHINE SULFATE [Suspect]
     Indication: BACK PAIN
  2. MORPHINE SULFATE [Suspect]
     Indication: PAIN IN EXTREMITY
  3. KLONOPIN [Concomitant]
  4. RESTORIL [Concomitant]
  5. OTHER MEDICATIONS OF UNKNOWN NAMES [Concomitant]

REACTIONS (6)
  - CARDIOMYOPATHY [None]
  - COR PULMONALE [None]
  - CORONARY ARTERY DISEASE [None]
  - HYPOXIA [None]
  - PHARMACEUTICAL PRODUCT COMPLAINT [None]
  - PNEUMONIA [None]
